FAERS Safety Report 5385843-2 (Version None)
Quarter: 2007Q3

REPORT INFORMATION
  Report Type: 
  Country: None (occurrence: None)
  Receive Date: 20070712
  Receipt Date: 20070702
  Transmission Date: 20080115
  Serious: Yes (Death, Other)
  Sender: FDA-Public Use
  Company Number: US-ELI_LILLY_AND_COMPANY-US200703003475

PATIENT
  Age: 59 Year
  Sex: Female

DRUGS (3)
  1. AMITRIPTYLINE HCL [Concomitant]
     Dosage: 75 MG, UNK
  2. RANITIDINE [Concomitant]
     Dosage: 150 MG, 3/D
  3. FLUOXETINE HYDROCHLORIDE [Suspect]
     Indication: DEPRESSION
     Dosage: 30 MG, UNK
     Dates: start: 20051201

REACTIONS (2)
  - DRUG INTERACTION [None]
  - MITRAL VALVE PROLAPSE [None]
